FAERS Safety Report 7632857-5 (Version None)
Quarter: 2011Q3

REPORT INFORMATION
  Report Type: 
  Country: None (occurrence: None)
  Receive Date: 20110725
  Receipt Date: 20110719
  Transmission Date: 20111222
  Serious: Yes (Hospitalization)
  Sender: FDA-Public Use
  Company Number: GB-ROCHE-750911

PATIENT
  Sex: Female
  Weight: 9.2 kg

DRUGS (5)
  1. COTRIM [Suspect]
     Route: 042
  2. HYOSCINE HBR HYT [Suspect]
     Dosage: DRUG REPORTED AS: HYOSCINE PATCH
     Route: 065
  3. OSELTAMIVIR [Suspect]
     Indication: INFLUENZA
     Dosage: FORM: LIQUID, DATE OF LAST DOSE PRIOR TO SAE: 22 DECEMBER 2010
     Route: 048
     Dates: start: 20101217
  4. OMEPRAZOLE [Suspect]
     Route: 065
  5. DOMPERIDONE [Suspect]
     Route: 065

REACTIONS (1)
  - PNEUMONIA ASPIRATION [None]
